FAERS Safety Report 20160763 (Version 1)
Quarter: 2021Q4

REPORT INFORMATION
  Report Type: Spontaneous
  Country: US (occurrence: None)
  Receive Date: 20211208
  Receipt Date: 20211208
  Transmission Date: 20220303
  Serious: No
  Sender: FDA-Public Use
  Company Number: 2021A807193

PATIENT
  Age: 82 Year
  Sex: Female
  Weight: 56.7 kg

DRUGS (6)
  1. ROSUVASTATIN [Suspect]
     Active Substance: ROSUVASTATIN
     Indication: Dyslipidaemia
     Route: 048
  2. EDOXABAN [Suspect]
     Active Substance: EDOXABAN
     Route: 065
  3. PERINDOPRIL [Concomitant]
     Active Substance: PERINDOPRIL
  4. HYDROCHLOROTHIAZIDE [Concomitant]
     Active Substance: HYDROCHLOROTHIAZIDE
  5. NAPROXEN PRN [Concomitant]
  6. ACETAMINOPHEN PRN [Concomitant]

REACTIONS (1)
  - Gastrointestinal haemorrhage [Unknown]
